FAERS Safety Report 7940089-6 (Version None)
Quarter: 2011Q4

REPORT INFORMATION
  Report Type: 
  Country: None (occurrence: None)
  Receive Date: 20111125
  Receipt Date: 20111123
  Transmission Date: 20120403
  Serious: Yes (Life-Threatening, Hospitalization, Other)
  Sender: FDA-Public Use
  Company Number: PHHY2011BR102952

PATIENT
  Sex: Female

DRUGS (5)
  1. ONBREZ [Suspect]
     Indication: DYSPNOEA
     Dosage: 150 UG, UNK
  2. BEROTEC [Concomitant]
  3. OXYGEN [Concomitant]
     Dosage: UNK
  4. ATROVENT [Concomitant]
  5. BAMIFIX [Concomitant]
     Indication: DYSPNOEA
     Dosage: 1 DF, BID

REACTIONS (3)
  - ASPHYXIA [None]
  - DRUG INEFFECTIVE [None]
  - CHRONIC OBSTRUCTIVE PULMONARY DISEASE [None]
